FAERS Safety Report 4927970-7 (Version None)
Quarter: 2006Q1

REPORT INFORMATION
  Report Type: 
  Country: None (occurrence: None)
  Receive Date: 20060223
  Receipt Date: 20060210
  Transmission Date: 20060701
  Serious: Yes (Hospitalization)
  Sender: FDA-Public Use
  Company Number: 2006021697

PATIENT
  Age: 49 Year
  Sex: Female

DRUGS (2)
  1. DOSTINEX [Suspect]
     Indication: PITUITARY TUMOUR BENIGN
     Dosage: 1 IN 1 WK
     Dates: start: 20050801, end: 20060101
  2. ALEPSAL (BELLADONNA EXTERACT, CAFFEINE, PHENOBARBITAL) [Concomitant]

REACTIONS (2)
  - ABNORMAL BEHAVIOUR [None]
  - HALLUCINATION [None]
